FAERS Safety Report 16441532 (Version 1)
Quarter: 2019Q2

REPORT INFORMATION
  Report Type: Spontaneous
  Country: US (occurrence: US)
  Receive Date: 20190617
  Receipt Date: 20190617
  Transmission Date: 20190711
  Serious: Yes (Hospitalization, Other)
  Sender: FDA-Public Use
  Company Number: US-BAUSCH-BL-2019-017181

PATIENT
  Age: 81 Year
  Sex: Female

DRUGS (1)
  1. PLENVU [Suspect]
     Active Substance: ASCORBIC ACID\POLYETHYLENE GLYCOL 3350\POTASSIUM CHLORIDE\SODIUM ASCORBATE\SODIUM CHLORIDE\SODIUM SULFATE
     Indication: BOWEL PREPARATION
     Dosage: DOSE 1 AT 6PM , BY 8/.8.30PM MY BOWELS WORKED ?AS DIRECTED
     Route: 048

REACTIONS (8)
  - Loss of consciousness [Unknown]
  - Tremor [Unknown]
  - Agitation [Unknown]
  - Vomiting [Unknown]
  - Electrolyte depletion [Unknown]
  - Hyponatraemia [Unknown]
  - Feeling hot [Unknown]
  - Seizure [Unknown]
